FAERS Safety Report 21864643 (Version 2)
Quarter: 2023Q1

REPORT INFORMATION
  Report Type: Spontaneous
  Country: US (occurrence: None)
  Receive Date: 20230116
  Receipt Date: 20230220
  Transmission Date: 20230418
  Serious: Yes (Other)
  Sender: FDA-Public Use
  Company Number: US-ROCHE-3259349

PATIENT

DRUGS (2)
  1. ACTIVASE [Suspect]
     Active Substance: ALTEPLASE
     Indication: Cerebrovascular accident
     Dosage: EXPIRY DATE: JUL/2024
     Route: 065
  2. ACTIVASE [Suspect]
     Active Substance: ALTEPLASE

REACTIONS (2)
  - Product closure issue [Unknown]
  - No adverse event [Unknown]

NARRATIVE: CASE EVENT DATE: 20221225
